FAERS Safety Report 18712402 (Version 1)
Quarter: 2021Q1

REPORT INFORMATION
  Report Type: Spontaneous
  Country: US (occurrence: US)
  Receive Date: 20210107
  Receipt Date: 20210107
  Transmission Date: 20210419
  Serious: Yes (Other)
  Sender: FDA-Public Use
  Company Number: None

PATIENT
  Age: 71 Year
  Sex: Male
  Weight: 55 kg

DRUGS (9)
  1. CAPECITABINE. [Suspect]
     Active Substance: CAPECITABINE
     Indication: SMALL INTESTINE CARCINOMA
     Dosage: ?          OTHER FREQUENCY:2 TAB AM, 3 TAB PM;?
     Route: 048
     Dates: start: 20201026, end: 20210107
  2. ALEVE [Concomitant]
     Active Substance: NAPROXEN SODIUM
  3. ATORVASTATIN CALCIUM. [Concomitant]
     Active Substance: ATORVASTATIN CALCIUM
  4. BENEFIBER [Concomitant]
     Active Substance: STARCH, WHEAT
  5. STOOL SOFTENER (DOCUSATE) [Concomitant]
     Active Substance: DOCUSATE
  6. PANTOPRAZOLE SODIUM. [Concomitant]
     Active Substance: PANTOPRAZOLE SODIUM
  7. ASPIRIN 81 [Concomitant]
     Active Substance: ASPIRIN
  8. METOPROLOL TARTRATE. [Concomitant]
     Active Substance: METOPROLOL TARTRATE
  9. CEFTRIAXONE SODIUM. [Concomitant]
     Active Substance: CEFTRIAXONE SODIUM

REACTIONS (1)
  - Abdominal pain upper [None]

NARRATIVE: CASE EVENT DATE: 20210107
